FAERS Safety Report 20223264 (Version 2)
Quarter: 2022Q1

REPORT INFORMATION
  Report Type: Other
  Country: US (occurrence: None)
  Receive Date: 20211223
  Receipt Date: 20220328
  Transmission Date: 20220423
  Serious: Yes (Other)
  Sender: FDA-Public Use
  Company Number: US-ROCHE-2980180

PATIENT
  Sex: Female
  Weight: 74.910 kg

DRUGS (4)
  1. OCREVUS [Suspect]
     Active Substance: OCRELIZUMAB
     Indication: Relapsing multiple sclerosis
     Dosage: SEVEN HOURS LONG
     Route: 042
     Dates: start: 202011, end: 20210525
  2. BACLOFEN [Concomitant]
     Active Substance: BACLOFEN
     Dosage: 2-4 TIMES A DAY PRN
     Route: 048
  3. DICLOFENAC [Concomitant]
     Active Substance: DICLOFENAC
     Route: 048
  4. SENNAE [Concomitant]
     Indication: Constipation
     Route: 048

REACTIONS (3)
  - Multiple sclerosis relapse [Recovering/Resolving]
  - Quadriplegia [Not Recovered/Not Resolved]
  - Multiple sclerosis [Not Recovered/Not Resolved]
